FAERS Safety Report 10061537 (Version 1)
Quarter: 2014Q2

REPORT INFORMATION
  Report Type: Spontaneous
  Country: IT (occurrence: IT)
  Receive Date: 20140407
  Receipt Date: 20140407
  Transmission Date: 20141212
  Serious: Yes (Other)
  Sender: FDA-Public Use
  Company Number: IT-ROCHE-1376345

PATIENT
  Age: 61 Year
  Sex: Male
  Weight: 65 kg

DRUGS (2)
  1. ZELBORAF [Suspect]
     Indication: MALIGNANT MELANOMA
     Route: 048
     Dates: start: 20140131, end: 20140328
  2. ZELBORAF [Suspect]
     Dosage: REDUCED DOSE OF 75%
     Route: 048

REACTIONS (2)
  - Mucosal inflammation [Unknown]
  - Weight decreased [Unknown]
